FAERS Safety Report 4356185-9 (Version None)
Quarter: 2004Q2

REPORT INFORMATION
  Report Type: 
  Country: None (occurrence: None)
  Receive Date: 20040507
  Receipt Date: 20040426
  Transmission Date: 20050107
  Serious: Yes (Life-Threatening, Hospitalization)
  Sender: FDA-Public Use
  Company Number: 7879

PATIENT
  Age: 62 Year
  Sex: Male

DRUGS (4)
  1. METHOTREXATE [Suspect]
     Indication: BREAST CANCER
     Dosage: 40 MG/M2 PER_CYCLE IV
     Route: 042
     Dates: start: 20040213
  2. FLUOROURACIL [Suspect]
     Indication: BREAST CANCER
     Dosage: 600 MG/M2 PER_CYCLE IV
     Route: 042
  3. CYCLOPHOSPHAMIDE [Suspect]
     Indication: BREAST CANCER
     Dosage: 600 MG/M2 IV
     Route: 042
     Dates: start: 20040213
  4. LANSOPRAZOLE [Concomitant]

REACTIONS (2)
  - NEUTROPENIC SEPSIS [None]
  - URINARY TRACT INFECTION [None]
